FAERS Safety Report 8544986-2 (Version None)
Quarter: 2012Q3

REPORT INFORMATION
  Report Type: 
  Country: None (occurrence: None)
  Receive Date: 20120727
  Receipt Date: 20120718
  Transmission Date: 20120928
  Serious: Yes (Hospitalization)
  Sender: FDA-Public Use
  Company Number: US-GLAXOSMITHKLINE-A0983808A

PATIENT
  Age: 66 Year
  Sex: Female

DRUGS (5)
  1. DEXRAZOXANE HYDROCHLORIDE [Concomitant]
  2. DACARBAZINE [Concomitant]
  3. PAZOPANIB [Suspect]
     Indication: ANGIOSARCOMA
     Route: 048
  4. ADRIAMYCIN PFS [Concomitant]
  5. OXYGEN [Concomitant]

REACTIONS (1)
  - BLOOD TEST ABNORMAL [None]
